FAERS Safety Report 21544711 (Version 1)
Quarter: 2022Q4

REPORT INFORMATION
  Report Type: Spontaneous
  Country: US (occurrence: US)
  Receive Date: 20221102
  Receipt Date: 20221102
  Transmission Date: 20230113
  Serious: No
  Sender: FDA-Public Use
  Company Number: US-BoehringerIngelheim-2022-BI-200559

PATIENT
  Age: 14 Year
  Sex: Female

DRUGS (1)
  1. ATROVENT HFA [Suspect]
     Active Substance: IPRATROPIUM BROMIDE
     Indication: Vocal cord dysfunction
     Dosage: FORM OF ADMIN: INHALATION SPRAY

REACTIONS (2)
  - Intentional product use issue [Unknown]
  - Off label use [Unknown]
